FAERS Safety Report 25226492 (Version 1)
Quarter: 2025Q2

REPORT INFORMATION
  Report Type: Spontaneous
  Country: US (occurrence: US)
  Receive Date: 20250422
  Receipt Date: 20250422
  Transmission Date: 20250717
  Serious: No
  Sender: AMGEN
  Company Number: US-AMGEN-USASP2025078011

PATIENT
  Age: 66 Year
  Sex: Female

DRUGS (3)
  1. EVENITY [Suspect]
     Active Substance: ROMOSOZUMAB-AQQG
     Indication: Pathological fracture prophylaxis
     Dosage: UNK UNK, QMO
     Route: 065
     Dates: start: 2024, end: 2024
  2. EVENITY [Suspect]
     Active Substance: ROMOSOZUMAB-AQQG
     Indication: Off label use
  3. CLARITIN [Suspect]
     Active Substance: LORATADINE
     Indication: Pruritus
     Route: 065
     Dates: start: 2024

REACTIONS (4)
  - Rash [Unknown]
  - Pruritus [Unknown]
  - Off label use [Unknown]
  - Somnolence [Unknown]

NARRATIVE: CASE EVENT DATE: 20240101
